FAERS Safety Report 4511738-X (Version None)
Quarter: 2004Q4

REPORT INFORMATION
  Report Type: 
  Country: None (occurrence: None)
  Receive Date: 20041129
  Receipt Date: 20041115
  Transmission Date: 20050328
  Serious: Yes (Hospitalization)
  Sender: FDA-Public Use
  Company Number: 200414310FR

PATIENT
  Age: 84 Year
  Sex: Female

DRUGS (9)
  1. LASILIX [Suspect]
     Route: 048
     Dates: end: 20041011
  2. DI-ANTALVIC [Suspect]
     Route: 048
     Dates: end: 20041011
  3. STABLON [Suspect]
     Route: 048
     Dates: end: 20041011
  4. CORDARONE [Suspect]
     Route: 048
     Dates: end: 20041013
  5. PRIMPERAN INJ [Suspect]
     Route: 048
     Dates: end: 20041011
  6. TEMESTA [Concomitant]
     Route: 048
  7. TANAKAN [Concomitant]
     Route: 048
  8. DIAFUSOR [Concomitant]
     Route: 062
  9. PREVISCAN [Concomitant]
     Route: 048

REACTIONS (6)
  - ALANINE AMINOTRANSFERASE INCREASED [None]
  - ASPARTATE AMINOTRANSFERASE INCREASED [None]
  - BLOOD ALKALINE PHOSPHATASE INCREASED [None]
  - HEPATIC ENZYME INCREASED [None]
  - PNEUMONITIS [None]
  - PULMONARY TOXICITY [None]
